FAERS Safety Report 5221281-0 (Version None)
Quarter: 2007Q1

REPORT INFORMATION
  Report Type: 
  Country: None (occurrence: None)
  Receive Date: 20070126
  Receipt Date: 20061018
  Transmission Date: 20070707
  Serious: Yes (Other)
  Sender: FDA-Public Use
  Company Number: US-PFIZER INC-2006128495

PATIENT
  Sex: Male
  Weight: 81.6 kg

DRUGS (3)
  1. CADUET [Suspect]
     Indication: BLOOD CHOLESTEROL INCREASED
     Dosage: TEXT:5/20 MG
     Route: 048
     Dates: start: 20060912, end: 20060919
  2. CADUET [Suspect]
     Indication: HYPERTENSION
  3. ASPIRIN [Concomitant]

REACTIONS (5)
  - EYE IRRITATION [None]
  - FLUSHING [None]
  - HEADACHE [None]
  - INFLUENZA LIKE ILLNESS [None]
  - SWELLING FACE [None]
